FAERS Safety Report 4586778-5 (Version None)
Quarter: 2005Q1

REPORT INFORMATION
  Report Type: 
  Country: None (occurrence: None)
  Receive Date: 20050217
  Receipt Date: 20050217
  Transmission Date: 20050727
  Serious: Yes (Other)
  Sender: FDA-Public Use
  Company Number: None

PATIENT
  Age: 33 Year
  Sex: Female
  Weight: 83.0083 kg

DRUGS (3)
  1. LEVAQUIN [Suspect]
     Indication: SINUSITIS
     Dosage: 500 MG    1 TIME DAILY    ORAL
     Route: 048
     Dates: start: 20050210, end: 20050215
  2. AMITEX LA- NEW FORMULA [Suspect]
     Indication: SINUSITIS
     Dosage: TWICE DAILY   ORAL
     Route: 048
     Dates: start: 20050210, end: 20050212
  3. PAXIL CR [Concomitant]

REACTIONS (5)
  - ANXIETY [None]
  - FEELING JITTERY [None]
  - INSOMNIA [None]
  - MUSCLE TWITCHING [None]
  - PARAESTHESIA [None]
